FAERS Safety Report 4544571-3 (Version None)
Quarter: 2005Q1

REPORT INFORMATION
  Report Type: 
  Country: None (occurrence: None)
  Receive Date: 20050103
  Receipt Date: 20050103
  Transmission Date: 20050727
  Serious: Yes (Other)
  Sender: FDA-Public Use
  Company Number: None

PATIENT
  Age: 87 Year
  Sex: Female
  Weight: 59.4 kg

DRUGS (20)
  1. CYMBALTA [Suspect]
     Indication: DEPRESSION
     Dosage: 20 MG DAILY ORAL
     Route: 048
     Dates: start: 20041126, end: 20041129
  2. CYMBALTA [Suspect]
     Indication: DEPRESSION
     Dosage: 30 MG DAILY ORAL
     Route: 048
     Dates: start: 20041124, end: 20041126
  3. ATIVAN [Concomitant]
  4. SENNA [Concomitant]
  5. ZONEGRAN [Concomitant]
  6. VITC [Concomitant]
  7. PLENDIL [Concomitant]
  8. SYNTHROID [Concomitant]
  9. OCCUVITE [Concomitant]
  10. FELODIPINE [Concomitant]
  11. KEPPRA [Concomitant]
  12. FENTANYL [Concomitant]
  13. FOSAMAX [Concomitant]
  14. LASIX [Concomitant]
  15. METAMUCIL-2 [Concomitant]
  16. MIACALCIN [Concomitant]
  17. DOCUSATE [Concomitant]
  18. OSCAL/VIT D [Concomitant]
  19. ROBAXIN [Concomitant]
  20. WELLBUTRIN XL [Concomitant]

REACTIONS (2)
  - RASH ERYTHEMATOUS [None]
  - RASH PRURITIC [None]
